FAERS Safety Report 9392387 (Version 1)
Quarter: 2013Q3

REPORT INFORMATION
  Report Type: Spontaneous
  Country: US (occurrence: US)
  Receive Date: 20130710
  Receipt Date: 20130710
  Transmission Date: 20140515
  Serious: No
  Sender: FDA-Public Use
  Company Number: US-009507513-1306USA009319

PATIENT
  Sex: Female

DRUGS (2)
  1. IMPLANON [Suspect]
     Dosage: UNK
     Dates: end: 20130613
  2. NEXPLANON [Suspect]
     Indication: CONTRACEPTION
     Dosage: UNK
     Route: 059
     Dates: start: 20130613, end: 20130617

REACTIONS (4)
  - Headache [Unknown]
  - Dizziness [Not Recovered/Not Resolved]
  - Incorrect drug administration duration [Unknown]
  - Labyrinthitis [Unknown]
